FAERS Safety Report 18745063 (Version 1)
Quarter: 2021Q1

REPORT INFORMATION
  Report Type: Spontaneous
  Country: US (occurrence: US)
  Receive Date: 20210115
  Receipt Date: 20210115
  Transmission Date: 20210419
  Serious: No
  Sender: FDA-Public Use
  Company Number: US-BAYER-2021-024546

PATIENT
  Age: 23 Year
  Sex: Male

DRUGS (1)
  1. GADAVIST [Suspect]
     Active Substance: GADOBUTROL
     Indication: MAGNETIC RESONANCE IMAGING HEART
     Dosage: 15 ML, ONCE
     Route: 042
     Dates: start: 20201226, end: 20201226

REACTIONS (2)
  - Throat irritation [None]
  - Sneezing [None]

NARRATIVE: CASE EVENT DATE: 20201226
